FAERS Safety Report 22080997 (Version 1)
Quarter: 2023Q1

REPORT INFORMATION
  Report Type: Report from Study
  Country: US (occurrence: US)
  Receive Date: 20230309
  Receipt Date: 20230309
  Transmission Date: 20230417
  Serious: Yes (Hospitalization)
  Sender: FDA-Public Use
  Company Number: US-BAUSCH-BL-2023-003760

PATIENT
  Age: 53 Year
  Sex: Male

DRUGS (1)
  1. XIFAXAN [Suspect]
     Active Substance: RIFAXIMIN
     Indication: Product used for unknown indication
     Route: 065
     Dates: start: 20230124

REACTIONS (3)
  - Transfusion [Unknown]
  - Oesophageal variceal ligation [Unknown]
  - Endoscopy [Unknown]

NARRATIVE: CASE EVENT DATE: 20230201
